FAERS Safety Report 15111028 (Version 1)
Quarter: 2018Q3

REPORT INFORMATION
  Report Type: Report from Study
  Country: IT (occurrence: IT)
  Receive Date: 20180705
  Receipt Date: 20180705
  Transmission Date: 20181010
  Serious: Yes (Other)
  Sender: FDA-Public Use
  Company Number: IT-TEVA-2018-IT-919117

PATIENT
  Age: 65 Year
  Sex: Female

DRUGS (4)
  1. LERCANIDIPINA MYLAN ITALIA 10 MG COMPRESSE RIVESTITE CON FILM [Suspect]
     Active Substance: LERCANIDIPINE HYDROCHLORIDE
     Dosage: 1 DOSAGE FORMS DAILY;
     Route: 048
  2. OMEPRAZOLE. [Concomitant]
     Active Substance: OMEPRAZOLE
  3. NEBIVOLOLO TEVA [Suspect]
     Active Substance: NEBIVOLOL HYDROCHLORIDE
     Indication: HYPERTENSION
     Dosage: 1 DOSAGE FORMS DAILY;
     Route: 048
  4. DOXAZOSINA EG 2 MG COMPRESSE [Concomitant]
     Route: 048

REACTIONS (3)
  - Middle insomnia [Not Recovered/Not Resolved]
  - Cardiospasm [Not Recovered/Not Resolved]
  - Restlessness [Not Recovered/Not Resolved]

NARRATIVE: CASE EVENT DATE: 20180419
